FAERS Safety Report 13211711 (Version 1)
Quarter: 2017Q1

REPORT INFORMATION
  Report Type: Spontaneous
  Country: CN (occurrence: CN)
  Receive Date: 20170210
  Receipt Date: 20170210
  Transmission Date: 20170428
  Serious: Yes (Hospitalization, Other)
  Sender: FDA-Public Use
  Company Number: CN-PFIZER INC-2017053686

PATIENT
  Age: 70 Year
  Sex: Male
  Weight: 69 kg

DRUGS (2)
  1. CLOPIDOGREL HYDROGEN SULFATE [Suspect]
     Active Substance: CLOPIDOGREL BISULFATE
     Indication: PLATELET DISORDER
     Dosage: 75 MG, ONCE A DAY
     Route: 048
     Dates: start: 20151101, end: 20161205
  2. LIPITOR [Suspect]
     Active Substance: ATORVASTATIN CALCIUM
     Indication: ARTERIOSCLEROSIS
     Dosage: 20 MG, ONCE A DAY
     Route: 048
     Dates: start: 20151101, end: 20161205

REACTIONS (2)
  - Lung infection [Unknown]
  - Cerebral haemorrhage [Recovering/Resolving]

NARRATIVE: CASE EVENT DATE: 20161205
